FAERS Safety Report 14374385 (Version 1)
Quarter: 2018Q1

REPORT INFORMATION
  Report Type: Spontaneous
  Country: US (occurrence: US)
  Receive Date: 20180111
  Receipt Date: 20180111
  Transmission Date: 20180509
  Serious: Yes (Other)
  Sender: FDA-Public Use
  Company Number: US-BIOGEN-2018BI00506675

PATIENT
  Age: 30 Year
  Sex: Female

DRUGS (1)
  1. TYSABRI [Suspect]
     Active Substance: NATALIZUMAB
     Indication: MULTIPLE SCLEROSIS
     Route: 065

REACTIONS (7)
  - Vomiting [Unknown]
  - Peripheral swelling [Unknown]
  - Multiple sclerosis relapse [Unknown]
  - Erythema [Unknown]
  - Pruritus [Unknown]
  - Throat tightness [Unknown]
  - Skin burning sensation [Unknown]
